FAERS Safety Report 6012954-0 (Version None)
Quarter: 2008Q4

REPORT INFORMATION
  Report Type: 
  Country: None (occurrence: None)
  Receive Date: 20081219
  Receipt Date: 20070129
  Transmission Date: 20090506
  Serious: No
  Sender: FDA-Public Use
  Company Number: A0619075A

PATIENT
  Age: 4 Year
  Sex: Male

DRUGS (2)
  1. TRIZIVIR [Suspect]
  2. NO CONCURRENT MEDICATION [Concomitant]

REACTIONS (2)
  - DRUG EXPOSURE DURING PREGNANCY [None]
  - SPEECH DISORDER DEVELOPMENTAL [None]
